FAERS Safety Report 21315723 (Version 3)
Quarter: 2022Q4

REPORT INFORMATION
  Report Type: Spontaneous
  Country: JP (occurrence: JP)
  Receive Date: 20220909
  Receipt Date: 20221028
  Transmission Date: 20230113
  Serious: Yes (Other)
  Sender: FDA-Public Use
  Company Number: JP-MSD-2209JPN000411J

PATIENT
  Age: 76 Year
  Sex: Female
  Weight: 58 kg

DRUGS (16)
  1. STROMECTOL [Suspect]
     Active Substance: IVERMECTIN
     Indication: Acarodermatitis
     Dosage: 12 MILLIGRAM, QD
     Route: 048
     Dates: start: 20220820, end: 20220820
  2. STROMECTOL [Suspect]
     Active Substance: IVERMECTIN
     Dosage: 12 MILLIGRAM, QD
     Route: 048
     Dates: start: 20220827, end: 20220827
  3. STROMECTOL [Suspect]
     Active Substance: IVERMECTIN
     Dosage: 12 MILLIGRAM, QD
     Route: 048
     Dates: start: 20220903, end: 20220903
  4. STROMECTOL [Suspect]
     Active Substance: IVERMECTIN
     Dosage: 12 MILLIGRAM, QD
     Route: 048
     Dates: start: 20220910, end: 20220910
  5. EPINASTINE HYDROCHLORIDE [Suspect]
     Active Substance: EPINASTINE HYDROCHLORIDE
     Indication: Acarodermatitis
     Dosage: 20 MILLIGRAM, QD
     Route: 048
     Dates: start: 20220819, end: 20220825
  6. EPINASTINE HYDROCHLORIDE [Suspect]
     Active Substance: EPINASTINE HYDROCHLORIDE
     Indication: Pruritus
  7. EURAX [Concomitant]
     Active Substance: CROTAMITON
     Indication: Acarodermatitis
     Dosage: 1 G, 2-3 DOSES
     Dates: start: 20220819, end: 20220829
  8. EURAX [Concomitant]
     Active Substance: CROTAMITON
     Indication: Pruritus
  9. EURAX [Concomitant]
     Active Substance: CROTAMITON
     Indication: Rash
  10. FEXOFENADINE HYDROCHLORIDE [Concomitant]
     Active Substance: FEXOFENADINE HYDROCHLORIDE
     Indication: Pruritus
     Dosage: 60 MILLIGRAM, BID
     Route: 048
     Dates: start: 20220826, end: 20220829
  11. FEXOFENADINE HYDROCHLORIDE [Concomitant]
     Active Substance: FEXOFENADINE HYDROCHLORIDE
     Indication: Rash
  12. LANSOPRAZOLE [Concomitant]
     Active Substance: LANSOPRAZOLE
     Dosage: 15 MILLIGRAM, QD
     Route: 048
  13. LASIX [Concomitant]
     Active Substance: FUROSEMIDE
     Dosage: 40 MILLIGRAM, QD
     Route: 048
  14. DIGOXIN [Concomitant]
     Active Substance: DIGOXIN
     Dosage: 0.125 MILLIGRAM, QD
     Route: 048
  15. WARFARIN POTASSIUM [Concomitant]
     Active Substance: WARFARIN POTASSIUM
     Dosage: 3 GRAM, QD
     Route: 048
  16. BISOPROLOL FUMARATE [Concomitant]
     Active Substance: BISOPROLOL FUMARATE
     Dosage: 2.5 MILLIGRAM, QD
     Route: 048

REACTIONS (11)
  - Mazzotti reaction [Recovered/Resolved]
  - Malaise [Unknown]
  - Erythema [Recovering/Resolving]
  - Pruritus [Unknown]
  - Rash papular [Unknown]
  - Aspartate aminotransferase increased [Unknown]
  - Gamma-glutamyltransferase increased [Unknown]
  - Face oedema [Unknown]
  - Oedema peripheral [Unknown]
  - Drug ineffective [Unknown]
  - Inappropriate schedule of product administration [Unknown]

NARRATIVE: CASE EVENT DATE: 20220820
